FAERS Safety Report 4538213-0 (Version None)
Quarter: 2004Q4

REPORT INFORMATION
  Report Type: 
  Country: None (occurrence: None)
  Receive Date: 20041221
  Receipt Date: 20041208
  Transmission Date: 20050328
  Serious: Yes (Other)
  Sender: FDA-Public Use
  Company Number: 2004100287

PATIENT
  Age: 67 Year
  Sex: Male

DRUGS (1)
  1. SULPERAZONE (SULBACTAM, CEFOPERAZONE) [Suspect]
     Indication: BRONCHITIS
     Dosage: 1 GRAM, INTRAVENOUS
     Route: 042
     Dates: end: 20040111

REACTIONS (1)
  - ANAPHYLACTIC SHOCK [None]
